FAERS Safety Report 9157846 (Version 1)
Quarter: 2013Q1

REPORT INFORMATION
  Report Type: Report from Study
  Country: US (occurrence: US)
  Receive Date: 20130312
  Receipt Date: 20130312
  Transmission Date: 20140127
  Serious: No
  Sender: FDA-Public Use
  Company Number: US-009507513-1303USA004363

PATIENT
  Sex: Female

DRUGS (3)
  1. BOCEPREVIR [Suspect]
     Indication: HEPATITIS C
     Dosage: UNK, TID
     Dates: start: 20120402
  2. RIBAVIRIN [Suspect]
     Indication: HEPATITIS C
     Dosage: 200 MG, QD
     Dates: start: 20120216
  3. PEGINTERFERON ALFA-2A [Suspect]
     Indication: HEPATITIS C
     Dosage: 135 MICROGRAM, QW
     Dates: start: 20120216

REACTIONS (5)
  - Exfoliative rash [Unknown]
  - Rash pruritic [Unknown]
  - Red blood cell count decreased [Unknown]
  - Dyspnoea [Unknown]
  - Pneumonia [Unknown]
